FAERS Safety Report 4304623-X (Version None)
Quarter: 2004Q1

REPORT INFORMATION
  Report Type: 
  Country: None (occurrence: None)
  Receive Date: 20040226
  Receipt Date: 20031103
  Transmission Date: 20041129
  Serious: Yes (Life-Threatening, Other)
  Sender: FDA-Public Use
  Company Number: US-GLAXOSMITHKLINE-A0432860A

PATIENT
  Age: 26 Year
  Sex: Female
  Weight: 59.1 kg

DRUGS (3)
  1. WELLBUTRIN [Suspect]
     Indication: DEPRESSION
     Dosage: 300MG PER DAY
     Route: 048
     Dates: start: 20031024, end: 20031103
  2. ECHINACEA [Concomitant]
  3. MIRCETTE [Concomitant]

REACTIONS (8)
  - ABDOMINAL PAIN [None]
  - ABDOMINAL PAIN UPPER [None]
  - ANOREXIA [None]
  - CHROMATURIA [None]
  - HEPATITIS ACUTE [None]
  - JAUNDICE [None]
  - NAUSEA [None]
  - THROMBOCYTOPENIA [None]
